FAERS Safety Report 21584821 (Version 2)
Quarter: 2024Q3

REPORT INFORMATION
  Report Type: Report from Study
  Country: IT (occurrence: IT)
  Receive Date: 20221111
  Receipt Date: 20240702
  Transmission Date: 20241017
  Serious: Yes (Other)
  Sender: PFIZER
  Company Number: None

PATIENT
  Age: 16 Year
  Sex: Male

DRUGS (18)
  1. METHOTREXATE SODIUM [Suspect]
     Active Substance: METHOTREXATE SODIUM
     Indication: Non-Hodgkin^s lymphoma
     Dosage: 20 MG, DAILY
     Route: 048
     Dates: start: 20220914
  2. METHOTREXATE SODIUM [Suspect]
     Active Substance: METHOTREXATE SODIUM
     Indication: Non-Hodgkin^s lymphoma
     Dosage: 12 MG, SINGLE
     Route: 037
     Dates: start: 20220824, end: 20220824
  3. METHOTREXATE SODIUM [Suspect]
     Active Substance: METHOTREXATE SODIUM
     Dosage: 12 MG, SINGLE
     Route: 037
     Dates: start: 20220831, end: 20220831
  4. CYCLOPHOSPHAMIDE [Suspect]
     Active Substance: CYCLOPHOSPHAMIDE
     Indication: Non-Hodgkin^s lymphoma
     Dosage: 1950 MG, SINGLE
     Route: 042
     Dates: start: 20220822, end: 20220822
  5. VINCRISTINE [Suspect]
     Active Substance: VINCRISTINE
     Indication: Non-Hodgkin^s lymphoma
     Dosage: 2 MG, DAILY
     Route: 040
     Dates: start: 20220725, end: 20220725
  6. VINCRISTINE [Suspect]
     Active Substance: VINCRISTINE
     Dosage: 2 MG, DAILY
     Route: 040
     Dates: start: 20220801, end: 20220801
  7. VINCRISTINE [Suspect]
     Active Substance: VINCRISTINE
     Dosage: 2 MG, DAILY
     Route: 040
     Dates: start: 20220808, end: 20220808
  8. VINCRISTINE [Suspect]
     Active Substance: VINCRISTINE
     Dosage: 2 MG, DAILY
     Route: 040
     Dates: start: 20220816, end: 20220816
  9. CYTARABINE [Suspect]
     Active Substance: CYTARABINE
     Indication: Non-Hodgkin^s lymphoma
     Dosage: 148 MG, DAILY
     Route: 040
     Dates: start: 20220824, end: 20220827
  10. CYTARABINE [Suspect]
     Active Substance: CYTARABINE
     Dosage: 148 MG, DAILY
     Route: 040
     Dates: start: 20220830, end: 20220902
  11. PURINETHOL [Suspect]
     Active Substance: MERCAPTOPURINE
     Indication: Non-Hodgkin^s lymphoma
     Dosage: 50 MG, DAILY
     Route: 048
     Dates: start: 20220914
  12. THIOGUANINE ANHYDROUS [Suspect]
     Active Substance: THIOGUANINE ANHYDROUS
     Indication: Non-Hodgkin^s lymphoma
     Dosage: 114 MG, DAILY
     Route: 048
     Dates: start: 20220822, end: 20220902
  13. ONCASPAR [Suspect]
     Active Substance: PEGASPARGASE
     Indication: Non-Hodgkin^s lymphoma
     Dosage: 3150 MG, SINGLE
     Route: 042
     Dates: start: 20220725, end: 20220725
  14. DOXORUBICIN HYDROCHLORIDE [Suspect]
     Active Substance: DOXORUBICIN HYDROCHLORIDE
     Dosage: 59 MG
     Route: 042
     Dates: start: 20220725, end: 20220816
  15. DEXAMETHASONE SODIUM SUCCINATE [Concomitant]
     Active Substance: DEXAMETHASONE SODIUM SUCCINATE
     Dosage: 18 MG, DAILY
     Route: 048
     Dates: start: 20220718, end: 20220808
  16. DEXAMETHASONE SODIUM SUCCINATE [Concomitant]
     Active Substance: DEXAMETHASONE SODIUM SUCCINATE
     Dosage: 9 MG, DAILY
     Route: 048
     Dates: start: 20220808, end: 20220811
  17. DEXAMETHASONE SODIUM SUCCINATE [Concomitant]
     Active Substance: DEXAMETHASONE SODIUM SUCCINATE
     Dosage: 4.5 MG, DAILY
     Route: 048
     Dates: start: 20220712, end: 20220814
  18. DEXAMETHASONE SODIUM SUCCINATE [Concomitant]
     Active Substance: DEXAMETHASONE SODIUM SUCCINATE
     Dosage: 2.25 MG, DAILY
     Route: 048
     Dates: start: 20220715, end: 20220817

REACTIONS (3)
  - Hyperbilirubinaemia [Recovered/Resolved]
  - Leukopenia [Recovered/Resolved]
  - Anaemia [Recovered/Resolved]

NARRATIVE: CASE EVENT DATE: 20220822
